FAERS Safety Report 16329419 (Version 6)
Quarter: 2020Q4

REPORT INFORMATION
  Report Type: Report from Study
  Country: DE (occurrence: DE)
  Receive Date: 20190520
  Receipt Date: 20201211
  Transmission Date: 20210113
  Serious: Yes (Hospitalization, Other)
  Sender: FDA-Public Use
  Company Number: DE-UCBSA-2019020240

PATIENT
  Sex: Female

DRUGS (9)
  1. IBUPROFEN. [Concomitant]
     Active Substance: IBUPROFEN
     Dosage: 600 MILLIGRAM
     Dates: start: 20190415
  2. CERTOLIZUMAB PEGOL [Suspect]
     Active Substance: CERTOLIZUMAB PEGOL
     Indication: AXIAL SPONDYLOARTHRITIS
     Dosage: 400 MILLIGRAM
     Dates: start: 20180611
  3. FUSICUTAN PLUS BETAMETHASON [Concomitant]
     Indication: ERYTHEMA NODOSUM
     Dosage: 60 GRAM
     Dates: start: 2019
  4. IBUPROFEN. [Concomitant]
     Active Substance: IBUPROFEN
     Indication: PRODUCT USED FOR UNKNOWN INDICATION
     Dosage: 600 MILLIGRAM, ONCE DAILY (QD)
     Dates: start: 20180326, end: 20181029
  5. HUMIRA [Concomitant]
     Active Substance: ADALIMUMAB
     Indication: ERYTHEMA NODOSUM
     Dosage: 40 MILLIGRAM
     Dates: start: 20191010
  6. SULFASALAZINE. [Concomitant]
     Active Substance: SULFASALAZINE
     Indication: AXIAL SPONDYLOARTHRITIS
     Dosage: 3000 MILLIGRAM, ONCE DAILY (QD)
     Dates: start: 20150201
  7. CERTOLIZUMAB PEGOL [Suspect]
     Active Substance: CERTOLIZUMAB PEGOL
     Dosage: 200 MILLIGRAM, EV 2 WEEKS(QOW)
     Dates: end: 20190908
  8. EBASTIN ARISTO [Concomitant]
     Indication: ERYTHEMA NODOSUM
     Dosage: 10 MILLIGRAM
     Dates: start: 2019
  9. MOMEGALEN [Concomitant]
     Indication: ERYTHEMA NODOSUM
     Dosage: UNK
     Dates: start: 2019

REACTIONS (15)
  - Endometriosis [Unknown]
  - Road traffic accident [Unknown]
  - Erythema nodosum [Recovered/Resolved]
  - Infection susceptibility increased [Unknown]
  - Periumbilical abscess [Unknown]
  - Maternal exposure before pregnancy [Unknown]
  - Breast mass [Unknown]
  - Abortion spontaneous [Unknown]
  - Panniculitis [Unknown]
  - Colitis ulcerative [Unknown]
  - Urinary tract infection [Unknown]
  - Nasopharyngitis [Unknown]
  - Conjunctivitis [Unknown]
  - Diarrhoea haemorrhagic [Unknown]
  - Polycystic ovaries [Unknown]

NARRATIVE: CASE EVENT DATE: 20181015
